FAERS Safety Report 4446393-0 (Version None)
Quarter: 2004Q3

REPORT INFORMATION
  Report Type: 
  Country: None (occurrence: None)
  Receive Date: 20040907
  Receipt Date: 20040826
  Transmission Date: 20050211
  Serious: Yes (Hospitalization)
  Sender: FDA-Public Use
  Company Number: S04-USA-05896-01

PATIENT
  Age: 75 Year
  Sex: Female

DRUGS (9)
  1. NAMENDA [Suspect]
     Indication: DEMENTIA ALZHEIMER'S TYPE
     Dates: end: 20040824
  2. NAMENDA [Suspect]
     Indication: DEMENTIA ALZHEIMER'S TYPE
     Dosage: 5 MG QD PO
     Route: 048
  3. REMINYL [Concomitant]
  4. CATAPRES [Concomitant]
  5. COLACE (DOCUSATE SODIUM) [Concomitant]
  6. LOTENSIN [Concomitant]
  7. CELEBREX [Concomitant]
  8. RISPERDAL [Concomitant]
  9. TRAZODONE HCL [Concomitant]

REACTIONS (2)
  - BLOOD CREATINE PHOSPHOKINASE INCREASED [None]
  - FALL [None]
